FAERS Safety Report 4277046-X (Version None)
Quarter: 2004Q1

REPORT INFORMATION
  Report Type: 
  Country: None (occurrence: None)
  Receive Date: 20040120
  Receipt Date: 20040112
  Transmission Date: 20041129
  Serious: Yes (Hospitalization)
  Sender: FDA-Public Use
  Company Number: 2004CG00066

PATIENT
  Age: 44 Year
  Sex: Male
  Weight: 40 kg

DRUGS (1)
  1. FOSCAVIR [Suspect]
     Indication: CYTOMEGALOVIRUS INFECTION
     Dosage: 6 GR QD IV
     Route: 042
     Dates: start: 20031023, end: 20031029

REACTIONS (5)
  - BLOOD LACTATE DEHYDROGENASE INCREASED [None]
  - CARDIAC FAILURE [None]
  - HAEMOLYTIC ANAEMIA [None]
  - HYPOXIA [None]
  - VIRAL MYOCARDITIS [None]
